FAERS Safety Report 17405265 (Version 4)
Quarter: 2020Q1

REPORT INFORMATION
  Report Type: Report from Study
  Country: None (occurrence: CH)
  Receive Date: 20200212
  Receipt Date: 20200228
  Transmission Date: 20200409
  Serious: Yes (Hospitalization)
  Sender: FDA-Public Use
  Company Number: CH-ABBVIE-20K-151-3270105-00

PATIENT
  Sex: Male

DRUGS (3)
  1. DUODOPA [Suspect]
     Active Substance: CARBIDOPA\LEVODOPA
     Dosage: MD: 7.0 ML/H, CDR: 2.5 ML/H, CNR2.1 ML/H, ED: 1.5 ML,24 H THERAPY
     Route: 050
     Dates: start: 20170419, end: 20180612
  2. DUODOPA [Suspect]
     Active Substance: CARBIDOPA\LEVODOPA
     Indication: PARKINSON^S DISEASE
     Route: 050
     Dates: start: 20151027, end: 20170419
  3. DUODOPA [Suspect]
     Active Substance: CARBIDOPA\LEVODOPA
     Dosage: MD:7.0 ML/H, CDR: 2.7 ML/H, CNR 2.2 ML/H, ED: 1.8 ML, 24 H THERAPY
     Route: 050
     Dates: start: 20180612

REACTIONS (3)
  - Treatment noncompliance [Unknown]
  - Dysphagia [Not Recovered/Not Resolved]
  - Pneumonia aspiration [Recovered/Resolved]
